FAERS Safety Report 9249176 (Version 1)
Quarter: 2013Q2

REPORT INFORMATION
  Report Type: Spontaneous
  Country: US (occurrence: US)
  Receive Date: 20130423
  Receipt Date: 20130423
  Transmission Date: 20140414
  Serious: No
  Sender: FDA-Public Use
  Company Number: US-TEVA-399572USA

PATIENT
  Age: 61 Year
  Sex: Male
  Weight: 85.35 kg

DRUGS (4)
  1. AZILECT [Suspect]
     Indication: PARKINSON^S DISEASE
     Dosage: 1 MILLIGRAM DAILY;
     Route: 048
     Dates: start: 20130418
  2. CRESTOR [Concomitant]
     Indication: HYPERCHOLESTEROLAEMIA
     Dosage: 10 MILLIGRAM DAILY;
     Route: 048
  3. Q10 [Concomitant]
     Indication: MEDICAL DIET
     Route: 048
  4. ASPIRIN [Concomitant]
     Indication: PROPHYLAXIS
     Dosage: 81 MILLIGRAM DAILY;
     Route: 048

REACTIONS (2)
  - Gingival hyperplasia [Not Recovered/Not Resolved]
  - Gingival inflammation [Not Recovered/Not Resolved]
